FAERS Safety Report 8256055-X (Version None)
Quarter: 2012Q2

REPORT INFORMATION
  Report Type: 
  Country: None (occurrence: None)
  Receive Date: 20120403
  Receipt Date: 20120319
  Transmission Date: 20120825
  Serious: Yes (Life-Threatening, Other)
  Sender: FDA-Public Use
  Company Number: AU-ROCHE-1054131

PATIENT
  Age: 62 Year
  Sex: Male

DRUGS (1)
  1. ALTEPLASE [Suspect]
     Indication: RETINAL ARTERY OCCLUSION

REACTIONS (7)
  - BRAIN HERNIATION [None]
  - HEMIPLEGIA [None]
  - BRAIN OEDEMA [None]
  - BRAIN MIDLINE SHIFT [None]
  - ALTERED STATE OF CONSCIOUSNESS [None]
  - APHASIA [None]
  - CEREBRAL HAEMORRHAGE [None]
